FAERS Safety Report 7203397-2 (Version None)
Quarter: 2010Q4

REPORT INFORMATION
  Report Type: 
  Country: None (occurrence: None)
  Receive Date: 20101220
  Receipt Date: 20101208
  Transmission Date: 20110411
  Serious: Yes (Hospitalization)
  Sender: FDA-Public Use
  Company Number: WWISSUE-534

PATIENT
  Sex: Female

DRUGS (1)
  1. CIPROFLOXACIN [Suspect]
     Dosage: 500MG
     Dates: start: 20081101

REACTIONS (5)
  - FOOT DEFORMITY [None]
  - JOINT INJURY [None]
  - LIMB INJURY [None]
  - PARALYSIS [None]
  - ROTATOR CUFF SYNDROME [None]
